FAERS Safety Report 9679571 (Version 1)
Quarter: 2013Q4

REPORT INFORMATION
  Report Type: Spontaneous
  Country: US (occurrence: US)
  Receive Date: 20131109
  Receipt Date: 20131109
  Transmission Date: 20140711
  Serious: No
  Sender: FDA-Public Use
  Company Number: US-SA-2013SA097476

PATIENT
  Age: 76 Year
  Sex: Male

DRUGS (3)
  1. ALLEGRA-D [Suspect]
     Indication: HYPERSENSITIVITY
     Dosage: DOSE -- 180 MG / 240 MG
     Route: 048
  2. CLARITIN [Concomitant]
  3. FLONASE [Concomitant]

REACTIONS (1)
  - Insomnia [Not Recovered/Not Resolved]
